FAERS Safety Report 7629972-9 (Version None)
Quarter: 2011Q3

REPORT INFORMATION
  Report Type: 
  Country: None (occurrence: None)
  Receive Date: 20110722
  Receipt Date: 20110720
  Transmission Date: 20111222
  Serious: Yes (Disabling)
  Sender: FDA-Public Use
  Company Number: US-MERCK-1107USA02568

PATIENT

DRUGS (1)
  1. FOSAMAX [Suspect]
     Indication: OSTEOPOROSIS
     Route: 048
     Dates: start: 19950101, end: 20050101

REACTIONS (13)
  - BONE DISORDER [None]
  - TOOTH LOSS [None]
  - OSTEONECROSIS OF JAW [None]
  - BONE DENSITY DECREASED [None]
  - OSTEOMYELITIS [None]
  - EXPOSED BONE IN JAW [None]
  - DEVICE FAILURE [None]
  - ORAL INFECTION [None]
  - GINGIVAL DISORDER [None]
  - GINGIVITIS [None]
  - GINGIVAL PAIN [None]
  - NECROSIS [None]
  - ABSCESS [None]
